FAERS Safety Report 9686007 (Version 1)
Quarter: 2013Q4

REPORT INFORMATION
  Report Type: Spontaneous
  Country: US (occurrence: US)
  Receive Date: 20131113
  Receipt Date: 20131113
  Transmission Date: 20140711
  Serious: No
  Sender: FDA-Public Use
  Company Number: US-ALLERGAN-1302425US

PATIENT
  Age: 52 Year
  Sex: Female

DRUGS (1)
  1. COMBIGAN[R] [Suspect]
     Indication: GLAUCOMA
     Dosage: 2 GTT, QD
     Route: 047
     Dates: start: 20121228

REACTIONS (3)
  - Inappropriate schedule of drug administration [Unknown]
  - Vision blurred [Unknown]
  - Vision blurred [Unknown]
